FAERS Safety Report 14018518 (Version 1)
Quarter: 2017Q3

REPORT INFORMATION
  Report Type: Spontaneous
  Country: US (occurrence: None)
  Receive Date: 20170928
  Receipt Date: 20170928
  Transmission Date: 20171128
  Serious: Yes (Hospitalization)
  Sender: FDA-Public Use
  Company Number: None

PATIENT
  Age: 60 Year
  Sex: Female
  Weight: 42.8 kg

DRUGS (13)
  1. LEUCOVORIN CALCIUM. [Suspect]
     Active Substance: LEUCOVORIN CALCIUM
     Dates: end: 20170905
  2. IMODIUM [Concomitant]
     Active Substance: LOPERAMIDE HYDROCHLORIDE
  3. MAGNESIUM OXIDE. [Concomitant]
     Active Substance: MAGNESIUM OXIDE
  4. METFORMIN [Concomitant]
     Active Substance: METFORMIN HYDROCHLORIDE
  5. ELOXATIN [Suspect]
     Active Substance: OXALIPLATIN
     Dates: end: 20170905
  6. GAS-X [Concomitant]
     Active Substance: DIMETHICONE
  7. ALKA-SELTZER [Concomitant]
     Active Substance: ANHYDROUS CITRIC ACID\ASPIRIN\SODIUM BICARBONATE
  8. VITAMIN B12 [Suspect]
     Active Substance: CYANOCOBALAMIN
  9. 5-FLUOROURACIL (5-FU) [Suspect]
     Active Substance: FLUOROURACIL
     Dates: end: 20170905
  10. ATORVASTATIN [Concomitant]
     Active Substance: ATORVASTATIN
  11. CAMPTOSAR [Suspect]
     Active Substance: IRINOTECAN HYDROCHLORIDE
     Dates: end: 20170905
  12. ADVIL [Concomitant]
     Active Substance: IBUPROFEN
  13. ZOFRAN [Concomitant]
     Active Substance: ONDANSETRON HYDROCHLORIDE

REACTIONS (2)
  - Liver abscess [None]
  - Leukocytosis [None]

NARRATIVE: CASE EVENT DATE: 20170918
